FAERS Safety Report 16403083 (Version 1)
Quarter: 2019Q2

REPORT INFORMATION
  Report Type: Spontaneous
  Country: HU (occurrence: HU)
  Receive Date: 20190607
  Receipt Date: 20190607
  Transmission Date: 20190711
  Serious: Yes (Death, Other)
  Sender: FDA-Public Use
  Company Number: HU-ACTELION-A-CH2019-191192

PATIENT
  Age: 30 Year
  Sex: Female
  Weight: 40 kg

DRUGS (2)
  1. STAYVEER [Suspect]
     Active Substance: BOSENTAN
     Indication: PRODUCT USED FOR UNKNOWN INDICATION
     Dosage: 125 MG, BID
     Route: 048
     Dates: start: 20070120, end: 20190528
  2. REMODULIN [Concomitant]
     Active Substance: TREPROSTINIL
     Dosage: 70 MG, QD
     Route: 042
     Dates: start: 20130220, end: 20190528

REACTIONS (2)
  - Syncope [Unknown]
  - Death [Fatal]

NARRATIVE: CASE EVENT DATE: 20190528
